FAERS Safety Report 7820245-8 (Version None)
Quarter: 2011Q4

REPORT INFORMATION
  Report Type: 
  Country: None (occurrence: None)
  Receive Date: 20111018
  Receipt Date: 20111014
  Transmission Date: 20120403
  Serious: Yes (Other)
  Sender: FDA-Public Use
  Company Number: JP-PFIZER INC-2011230579

PATIENT
  Age: 6 Year
  Sex: Male

DRUGS (1)
  1. SOMATROPIN [Suspect]
     Dosage: 0.26 MG/KG, WEEKLY
     Route: 058

REACTIONS (2)
  - ARTHRALGIA [None]
  - JOINT ANKYLOSIS [None]
